FAERS Safety Report 10152716 (Version 2)
Quarter: 2014Q2

REPORT INFORMATION
  Report Type: Spontaneous
  Country: FR (occurrence: FR)
  Receive Date: 20140505
  Receipt Date: 20140516
  Transmission Date: 20141212
  Serious: Yes (Hospitalization, Other)
  Sender: FDA-Public Use
  Company Number: FR-JNJFOC-20140414996

PATIENT
  Age: 68 Year
  Sex: Female

DRUGS (8)
  1. DUROGESIC [Suspect]
     Indication: ARTHRALGIA
     Route: 062
     Dates: start: 201310
  2. TRANXENE [Suspect]
     Indication: PRODUCT USED FOR UNKNOWN INDICATION
     Route: 065
  3. ATARAX [Suspect]
     Indication: PRODUCT USED FOR UNKNOWN INDICATION
     Route: 065
  4. LOVENOX [Concomitant]
     Indication: PRODUCT USED FOR UNKNOWN INDICATION
     Route: 065
  5. PERFALGAN [Concomitant]
     Indication: PRODUCT USED FOR UNKNOWN INDICATION
     Route: 065
  6. EUPANTOL [Concomitant]
     Indication: PRODUCT USED FOR UNKNOWN INDICATION
     Route: 065
  7. VANCOMYCINE [Concomitant]
     Indication: SEPSIS
     Dosage: INITIATED FROM 02-APR
     Route: 042
  8. VANCOMYCINE [Concomitant]
     Indication: PYELONEPHRITIS
     Dosage: INITIATED FROM 02-APR
     Route: 042

REACTIONS (2)
  - Toxic encephalopathy [Recovered/Resolved]
  - Overdose [Unknown]
